FAERS Safety Report 11654910 (Version 1)
Quarter: 2015Q4

REPORT INFORMATION
  Report Type: Spontaneous
  Country: JP (occurrence: JP)
  Receive Date: 20151023
  Receipt Date: 20151023
  Transmission Date: 20160304
  Serious: Yes (Death)
  Sender: FDA-Public Use
  Company Number: JP-PFIZER INC-2015356775

PATIENT
  Age: 8 Decade
  Sex: Male

DRUGS (5)
  1. ELPLAT [Suspect]
     Active Substance: OXALIPLATIN
     Indication: PANCREATIC CARCINOMA
     Dosage: 85 MG/M2, 1X/DAY (TOTAL OF 8 CYCLES)
     Route: 041
     Dates: start: 20150409, end: 20150723
  2. 5-FU /00098801/ [Suspect]
     Active Substance: FLUOROURACIL
     Dosage: UNK, ALTERNATE DAY
     Route: 041
     Dates: start: 20150409, end: 20150723
  3. 5-FU /00098801/ [Suspect]
     Active Substance: FLUOROURACIL
     Indication: PANCREATIC CARCINOMA
     Dosage: UNK, 1X/DAY (TOTAL OF 8 CYCLES)
     Route: 040
     Dates: start: 20150409, end: 20150723
  4. LEVOFOLINATE [Concomitant]
     Active Substance: LEVOLEUCOVORIN CALCIUM
     Dosage: UNK
     Dates: start: 20150409, end: 20150723
  5. CAMPTO [Suspect]
     Active Substance: IRINOTECAN
     Indication: PANCREATIC CARCINOMA
     Dosage: 180 MG/M2, 1X/DAY (TOTAL OF 8 CYCLES)
     Route: 041
     Dates: start: 20150409, end: 20150723

REACTIONS (3)
  - Death [Fatal]
  - Eastern Cooperative Oncology Group performance status worsened [Not Recovered/Not Resolved]
  - Decreased appetite [Not Recovered/Not Resolved]

NARRATIVE: CASE EVENT DATE: 20150806
